FAERS Safety Report 9064550 (Version 1)
Quarter: 2013Q1

REPORT INFORMATION
  Report Type: Spontaneous
  Country: CZ (occurrence: CZ)
  Receive Date: 20130129
  Receipt Date: 20130129
  Transmission Date: 20140127
  Serious: Yes (Other)
  Sender: FDA-Public Use
  Company Number: CZ-SPECTRUM PHARMACEUTICALS, INC.-13-Z-CZ-00024

PATIENT
  Sex: 0

DRUGS (5)
  1. ZEVALIN [Suspect]
     Indication: NON-HODGKIN^S LYMPHOMA
     Dosage: UNK
  2. RITUXIMAB [Suspect]
     Indication: NON-HODGKIN^S LYMPHOMA
     Dosage: UNK
  3. FLUDARABINE [Suspect]
     Indication: NON-HODGKIN^S LYMPHOMA
     Dosage: UNK
  4. CYCLOPHOSPHAMIDE [Suspect]
     Indication: NON-HODGKIN^S LYMPHOMA
  5. MITOXANTRONE [Suspect]
     Indication: NON-HODGKIN^S LYMPHOMA

REACTIONS (4)
  - Cytomegalovirus chorioretinitis [Unknown]
  - Neutropenia [Unknown]
  - Lymphoma [Unknown]
  - Acute myeloid leukaemia [Unknown]
